FAERS Safety Report 6055015-7 (Version None)
Quarter: 2009Q1

REPORT INFORMATION
  Report Type: 
  Country: None (occurrence: None)
  Receive Date: 20090122
  Receipt Date: 20090113
  Transmission Date: 20090719
  Serious: Yes (Other)
  Sender: FDA-Public Use
  Company Number: GXKR2009CZ00726

PATIENT
  Age: 30 Year
  Sex: Male

DRUGS (5)
  1. METHYLPREDNISOLONE 4MG TAB [Suspect]
     Indication: LUPUS NEPHRITIS
     Dosage: 8 PULSES (500MG/DAY-250MG/DAY, ORAL
     Route: 048
  2. CYCLOPHOSPHAMIDE [Suspect]
     Indication: LUPUS NEPHRITIS
     Dosage: 800 MG, INTRAVENOUS, 600 MG
     Route: 042
  3. MESNA [Suspect]
  4. LANSOPRAZOLE [Concomitant]
  5. NIMESULIDE (NIMESULIDE) [Concomitant]

REACTIONS (3)
  - DERMATITIS BULLOUS [None]
  - PURPURA [None]
  - SYSTEMIC LUPUS ERYTHEMATOSUS [None]
